FAERS Safety Report 21658016 (Version 8)
Quarter: 2024Q1

REPORT INFORMATION
  Report Type: Spontaneous
  Country: CA (occurrence: CA)
  Receive Date: 20221129
  Receipt Date: 20240328
  Transmission Date: 20240410
  Serious: Yes (Other)
  Sender: FDA-Public Use
  Company Number: CA-PFIZER INC-202201223125

PATIENT
  Age: 26 Year
  Sex: Female

DRUGS (5)
  1. ABRILADA [Suspect]
     Active Substance: ADALIMUMAB-AFZB
     Indication: Crohn^s disease
     Dosage: 1 DF,WEEK0 160MG, WEEK2 80MG, THAN Q2WEEKS STARTING WEEK4
     Route: 058
     Dates: start: 20220510, end: 2022
  2. ABRILADA [Suspect]
     Active Substance: ADALIMUMAB-AFZB
     Dosage: 40 MG, WEEKLY
     Route: 058
     Dates: start: 2022, end: 202305
  3. ABRILADA [Suspect]
     Active Substance: ADALIMUMAB-AFZB
     Dosage: 1 DF, RELOAD: 160 MG WEEK 0 AND 80 MG WEEK 2 40 MG WEEKLY STARTING WEEK 3
     Route: 058
     Dates: start: 2023, end: 2023
  4. ENTOCORT [Concomitant]
     Active Substance: BUDESONIDE
     Dosage: UNK,DOSE + FREQUENCY UNSPECIFIED
  5. ENTYVIO [Concomitant]
     Active Substance: VEDOLIZUMAB
     Dosage: UNK

REACTIONS (10)
  - Abscess [Unknown]
  - Abortion spontaneous [Unknown]
  - Drug specific antibody present [Not Recovered/Not Resolved]
  - Pyrexia [Recovered/Resolved]
  - Vomiting [Unknown]
  - Diarrhoea [Unknown]
  - Gastroenteritis [Recovered/Resolved]
  - Drug level below therapeutic [Unknown]
  - Maternal exposure during pregnancy [Unknown]
  - Off label use [Unknown]

NARRATIVE: CASE EVENT DATE: 20221001
